FAERS Safety Report 9160716 (Version 1)
Quarter: 2013Q1

REPORT INFORMATION
  Report Type: Spontaneous
  Country: US (occurrence: US)
  Receive Date: 20130313
  Receipt Date: 20130313
  Transmission Date: 20140127
  Serious: Yes (Other)
  Sender: FDA-Public Use
  Company Number: US-TEVA-390875USA

PATIENT
  Sex: Male

DRUGS (1)
  1. QVAR [Suspect]

REACTIONS (4)
  - Candida infection [Unknown]
  - Dysphonia [Unknown]
  - Pharyngeal oedema [Unknown]
  - Tonsillar inflammation [Unknown]
